FAERS Safety Report 18877400 (Version 1)
Quarter: 2021Q1

REPORT INFORMATION
  Report Type: Spontaneous
  Country: DE (occurrence: DE)
  Receive Date: 20210211
  Receipt Date: 20210211
  Transmission Date: 20210420
  Serious: Yes (Death, Other)
  Sender: FDA-Public Use
  Company Number: DE-VELOXIS PHARMACEUTICALS-2017VELDE-000274

PATIENT
  Sex: Male

DRUGS (7)
  1. EVEROLIMUS. [Suspect]
     Active Substance: EVEROLIMUS
     Indication: HEART TRANSPLANT
     Dosage: UNK
     Route: 065
  2. ENVARSUS XR [Suspect]
     Active Substance: TACROLIMUS
     Indication: IMMUNOSUPPRESSANT DRUG THERAPY
     Dosage: UNK
     Route: 042
  3. CYCLOSPORIN [Suspect]
     Active Substance: CYCLOSPORINE
     Indication: HEART TRANSPLANT
     Dosage: UNK
     Route: 065
  4. CYCLOSPORIN [Suspect]
     Active Substance: CYCLOSPORINE
     Indication: IMMUNOSUPPRESSANT DRUG THERAPY
     Dosage: UNK
     Route: 065
  5. EVEROLIMUS. [Suspect]
     Active Substance: EVEROLIMUS
     Indication: IMMUNOSUPPRESSANT DRUG THERAPY
     Dosage: UNK
     Route: 065
  6. URSODEOXYCHOLIC ACID [Suspect]
     Active Substance: URSODIOL
     Indication: HEART TRANSPLANT
     Dosage: UNK
     Route: 065
  7. ENVARSUS XR [Suspect]
     Active Substance: TACROLIMUS
     Indication: HEART TRANSPLANT
     Dosage: UNK
     Route: 048

REACTIONS (5)
  - Intentional product use issue [Unknown]
  - Sepsis [Fatal]
  - Drug level below therapeutic [Unknown]
  - Therapy non-responder [Unknown]
  - Heart transplant rejection [Unknown]
